FAERS Safety Report 18606837 (Version 2)
Quarter: 2021Q2

REPORT INFORMATION
  Report Type: Spontaneous
  Country: US (occurrence: US)
  Receive Date: 20201211
  Receipt Date: 20210410
  Transmission Date: 20210717
  Serious: No
  Sender: FDA-Public Use
  Company Number: NVSC2020US326594

PATIENT
  Sex: Female

DRUGS (2)
  1. COSENTYX [Suspect]
     Active Substance: SECUKINUMAB
     Indication: PRURITUS
     Dosage: UNK
     Route: 065
  2. COSENTYX [Suspect]
     Active Substance: SECUKINUMAB
     Indication: PAIN
     Dosage: 300 MG, QMO
     Route: 062
     Dates: start: 20201114

REACTIONS (4)
  - Pain [Unknown]
  - Product dose omission issue [Unknown]
  - Pruritus [Unknown]
  - Decreased immune responsiveness [Unknown]
